APPROVED DRUG PRODUCT: HYDROCORTISONE
Active Ingredient: HYDROCORTISONE
Strength: 2.5%
Dosage Form/Route: CREAM;TOPICAL
Application: A089682 | Product #001 | TE Code: AT
Applicant: ACTAVIS MID ATLANTIC LLC
Approved: Mar 10, 1988 | RLD: No | RS: No | Type: RX